FAERS Safety Report 14343142 (Version 1)
Quarter: 2017Q4

REPORT INFORMATION
  Report Type: Spontaneous
  Country: US (occurrence: US)
  Receive Date: 20171231
  Receipt Date: 20171231
  Transmission Date: 20180321
  Serious: Yes (Other)
  Sender: FDA-Public Use
  Company Number: None

PATIENT
  Sex: Female
  Weight: 71.1 kg

DRUGS (2)
  1. BUPROPION. [Concomitant]
     Active Substance: BUPROPION
  2. UP AND UP ALLERGY RELIEF (LORATADINE) [Suspect]
     Active Substance: LORATADINE
     Indication: SEASONAL ALLERGY
     Dosage: ?          QUANTITY:30 TABLET(S);?
     Route: 048

REACTIONS (3)
  - Mood swings [None]
  - Anger [None]
  - Depression [None]

NARRATIVE: CASE EVENT DATE: 20170601
